FAERS Safety Report 9592011 (Version 2)
Quarter: 2013Q4

REPORT INFORMATION
  Report Type: Spontaneous
  Country: US (occurrence: US)
  Receive Date: 20131004
  Receipt Date: 20131012
  Transmission Date: 20140711
  Serious: Yes (Death)
  Sender: FDA-Public Use
  Company Number: US-ROCHE-1284750

PATIENT
  Sex: Female

DRUGS (5)
  1. XELODA [Suspect]
     Indication: BREAST CANCER METASTATIC
     Dosage: 3(500 MG) TABS TWICE DAILY X 14 DAYS WITH 1 WK OFF
     Route: 065
  2. XELODA [Suspect]
     Indication: BLADDER CANCER
     Dosage: 2 IN THE AM, 1 IN THE PM, 14 DAYS ON, 7 DAYS OFF
     Route: 065
     Dates: start: 20130627
  3. XELODA [Suspect]
     Indication: BILE DUCT CANCER
  4. LIPITOR [Concomitant]
  5. PRILOSEC [Concomitant]

REACTIONS (1)
  - Death [Fatal]
